FAERS Safety Report 23240688 (Version 1)
Quarter: 2023Q4

REPORT INFORMATION
  Report Type: Spontaneous
  Country: FR (occurrence: FR)
  Receive Date: 20231129
  Receipt Date: 20231129
  Transmission Date: 20240110
  Serious: Yes (Other)
  Sender: FDA-Public Use
  Company Number: None

PATIENT
  Age: 35 Year
  Sex: Female

DRUGS (7)
  1. RISPERDAL [Suspect]
     Active Substance: RISPERIDONE
     Indication: Product used for unknown indication
     Route: 065
  2. PURINETHOL [Suspect]
     Active Substance: MERCAPTOPURINE
     Indication: Acute lymphocytic leukaemia
     Route: 048
     Dates: start: 200906, end: 201106
  3. METHOTREXATE [Suspect]
     Active Substance: METHOTREXATE
     Indication: Acute lymphocytic leukaemia
     Route: 048
     Dates: start: 200906, end: 201106
  4. IDARUBICIN [Suspect]
     Active Substance: IDARUBICIN
     Indication: Acute lymphocytic leukaemia
     Route: 042
     Dates: start: 200901, end: 200905
  5. VESANOID [Suspect]
     Active Substance: TRETINOIN
     Indication: Acute lymphocytic leukaemia
     Route: 048
     Dates: start: 200906, end: 201106
  6. CYTARABINE [Suspect]
     Active Substance: CYTARABINE
     Indication: Acute lymphocytic leukaemia
     Route: 042
     Dates: start: 200901, end: 200901
  7. TRISENOX [Suspect]
     Active Substance: ARSENIC TRIOXIDE
     Indication: Acute lymphocytic leukaemia
     Route: 042
     Dates: start: 200902, end: 200905

REACTIONS (3)
  - Behaviour disorder [Not Recovered/Not Resolved]
  - Drug dependence [Unknown]
  - Gambling [Unknown]

NARRATIVE: CASE EVENT DATE: 20110101
